FAERS Safety Report 8601677-7 (Version None)
Quarter: 2012Q3

REPORT INFORMATION
  Report Type: 
  Country: None (occurrence: None)
  Receive Date: 20120806
  Receipt Date: 20120806
  Transmission Date: 20120928
  Serious: No
  Sender: FDA-Public Use
  Company Number: None

PATIENT
  Sex: Female
  Weight: 55.7924 kg

DRUGS (1)
  1. CLOPIDOGREL [Suspect]
     Dosage: 1 EVERY DAY VDC 13668-0141-90
     Dates: start: 20120712

REACTIONS (5)
  - MIDDLE INSOMNIA [None]
  - ACCIDENT [None]
  - PRODUCT SUBSTITUTION ISSUE [None]
  - BALANCE DISORDER [None]
  - FEELING ABNORMAL [None]
